FAERS Safety Report 6550992-X (Version None)
Quarter: 2010Q1

REPORT INFORMATION
  Report Type: 
  Country: None (occurrence: None)
  Receive Date: 20100125
  Receipt Date: 20100125
  Transmission Date: 20100710
  Serious: No
  Sender: FDA-Public Use
  Company Number: US-ROXANE LABORATORIES, INC.-2009-RO-01014RO

PATIENT
  Sex: Female

DRUGS (1)
  1. HYDROMORPHONE [Suspect]
     Indication: PAIN

REACTIONS (3)
  - ADVERSE DRUG REACTION [None]
  - DRUG EFFECT DECREASED [None]
  - DRY MOUTH [None]
